FAERS Safety Report 9942244 (Version 1)
Quarter: 2014Q1

REPORT INFORMATION
  Report Type: Spontaneous
  Country: US (occurrence: US)
  Receive Date: 20140303
  Receipt Date: 20140303
  Transmission Date: 20141002
  Serious: Yes (Other)
  Sender: FDA-Public Use
  Company Number: US-GE HEALTHCARE MEDICAL DIAGNOSTICS-OMPQ-PR-1402S-0176

PATIENT
  Age: 74 Year
  Sex: Female
  Weight: 68.1 kg

DRUGS (12)
  1. OMNIPAQUE [Suspect]
     Indication: POLLAKIURIA
     Route: 042
     Dates: start: 20140219, end: 20140219
  2. OMNIPAQUE [Suspect]
     Indication: URINARY TRACT INFECTION
  3. OMNIPAQUE [Suspect]
     Indication: DIAGNOSTIC PROCEDURE
  4. CENTRUM PERFORMANCE [Concomitant]
  5. CRANBERRY [Concomitant]
  6. DILTIAZEM HCL [Concomitant]
     Route: 048
  7. ECOTRIN [Concomitant]
  8. SYNTHROID [Concomitant]
     Route: 048
  9. METOPROLOL TARTRATE [Concomitant]
     Route: 048
  10. NITROGLYCERIN [Concomitant]
     Route: 060
  11. PRILOSEC [Concomitant]
  12. XANAX [Concomitant]

REACTIONS (2)
  - Chest pain [Recovering/Resolving]
  - Drug hypersensitivity [Recovering/Resolving]
